FAERS Safety Report 9928753 (Version 2)
Quarter: 2015Q1

REPORT INFORMATION
  Report Type: Spontaneous
  Country: US (occurrence: None)
  Receive Date: 20140221
  Receipt Date: 20150327
  Transmission Date: 20150721
  Serious: Yes (Death)
  Sender: FDA-Public Use
  Company Number: FDB-2014-006

PATIENT
  Age: 91 Year
  Sex: Female
  Weight: 71 kg

DRUGS (4)
  1. KINEVAC [Suspect]
     Active Substance: SINCALIDE
     Indication: HEPATOBILIARY SCAN
     Route: 042
     Dates: start: 20140130
  2. KIT FOR THE PREPARATION OF TECHNETIUM TC 99M MEBROFENIN [Suspect]
     Active Substance: TECHNETIUM TC-99M MEBROFENIN
     Route: 042
     Dates: start: 20140130
  3. KINEVAC [Suspect]
     Active Substance: SINCALIDE
     Route: 042
     Dates: start: 20140130
  4. KIT FOR THE PREPARATION OF TECHNETIUM TC 99M MEBROFENIN [Suspect]
     Active Substance: TECHNETIUM TC-99M MEBROFENIN
     Indication: HEPATOBILIARY SCAN
     Route: 042
     Dates: start: 20140130

REACTIONS (5)
  - Nausea [None]
  - Vomiting [None]
  - Cardiac arrest [None]
  - Intestinal ischaemia [None]
  - Diarrhoea [None]

NARRATIVE: CASE EVENT DATE: 20140130
